FAERS Safety Report 17780602 (Version 2)
Quarter: 2020Q2

REPORT INFORMATION
  Report Type: Report from Study
  Country: US (occurrence: US)
  Receive Date: 20200513
  Receipt Date: 20200515
  Transmission Date: 20200714
  Serious: Yes (Hospitalization, Other)
  Sender: FDA-Public Use
  Company Number: US-UCBSA-2020014462

PATIENT
  Age: 75 Year
  Sex: Female
  Weight: 66 kg

DRUGS (1)
  1. CERTOLIZUMAB PEGOL [Suspect]
     Active Substance: CERTOLIZUMAB PEGOL
     Indication: RHEUMATOID ARTHRITIS
     Dosage: 400 MILLIGRAM, EV 4 WEEKS
     Dates: start: 20200204, end: 20200324

REACTIONS (6)
  - Urinary tract infection [None]
  - Product availability issue [Unknown]
  - Overdose [Unknown]
  - Product dose omission [Unknown]
  - Respiratory disorder [Not Recovered/Not Resolved]
  - Bacterial infection [None]

NARRATIVE: CASE EVENT DATE: 2020
